FAERS Safety Report 23632922 (Version 1)
Quarter: 2024Q1

REPORT INFORMATION
  Report Type: Spontaneous
  Country: FR (occurrence: FR)
  Receive Date: 20240314
  Receipt Date: 20240314
  Transmission Date: 20240410
  Serious: Yes (Life-Threatening, Other)
  Sender: FDA-Public Use
  Company Number: None

PATIENT

DRUGS (2)
  1. SUBUTEX [Suspect]
     Active Substance: BUPRENORPHINE HYDROCHLORIDE
     Indication: Product used for unknown indication
     Dosage: 1/4 8 MG TABLET PER DAY
     Route: 045
     Dates: end: 20231129
  2. NICOTINE [Suspect]
     Active Substance: NICOTINE
     Indication: Product used for unknown indication
     Dosage: 20 MANUFACTURED CIGARETTES PER DAY

REACTIONS (9)
  - Dilated cardiomyopathy [Not Recovered/Not Resolved]
  - Cardiogenic shock [Recovered/Resolved with Sequelae]
  - Angina pectoris [Recovered/Resolved]
  - Arteriogram coronary normal [Recovered/Resolved]
  - Ventricular dysfunction [Not Recovered/Not Resolved]
  - Product use issue [Recovered/Resolved]
  - Drug abuse [Recovering/Resolving]
  - Dyspnoea [Recovering/Resolving]
  - Wrong technique in product usage process [Unknown]

NARRATIVE: CASE EVENT DATE: 20040101
